FAERS Safety Report 6836414-X (Version None)
Quarter: 2010Q3

REPORT INFORMATION
  Report Type: 
  Country: None (occurrence: None)
  Receive Date: 20100713
  Receipt Date: 20100708
  Transmission Date: 20110219
  Serious: Yes (Life-Threatening, Hospitalization)
  Sender: FDA-Public Use
  Company Number: DK-PFIZER INC-2009189799

PATIENT
  Age: 55 Year
  Sex: Male

DRUGS (9)
  1. IRINOTECAN HCL [Suspect]
     Indication: RECTAL CANCER
     Dosage: FREQUENCY: CYCLIC, EVERY 2 WEEKS;TDD: 315 MG
     Route: 042
     Dates: start: 20090112, end: 20090224
  2. FLUOROURACIL [Suspect]
     Indication: RECTAL CANCER
     Dosage: FREQUENCY: CYCLIC, EVERY 2 WEEKS; TDD: 1700 MG
     Route: 042
     Dates: start: 20090112, end: 20090224
  3. AVASTIN [Suspect]
     Indication: RECTAL CANCER
     Dosage: FREQUENCY: CYCLIC, EVERY 2 WEEKS; UNIT DOSE: 25 MG, TDD: 300 MG
     Route: 042
     Dates: start: 20090112, end: 20090223
  4. PANTOLOC ^NYCOMED^ [Concomitant]
     Dosage: 40 MG, 1X/DAY
     Route: 048
  5. PREDNISOLONE [Concomitant]
     Indication: ANTIEMETIC SUPPORTIVE CARE
     Dosage: 50 MG, 1X/DAY
  6. ONDANSETRON [Concomitant]
     Indication: ANTIEMETIC SUPPORTIVE CARE
     Dosage: 8 MG, UNK
  7. EMPERAL [Concomitant]
     Indication: ANTIEMETIC SUPPORTIVE CARE
     Dosage: 10 MG, AS NEEDED
     Route: 048
  8. ATROPIN [Concomitant]
     Dosage: 0.25 MG, UNK
     Route: 042
  9. AMLODIPINE [Concomitant]
     Dosage: 10 MG, 1X/DAY
     Route: 048

REACTIONS (5)
  - AORTIC ANEURYSM [None]
  - DIARRHOEA [None]
  - MUCOUS MEMBRANE DISORDER [None]
  - NAUSEA [None]
  - PROTEINURIA [None]
